FAERS Safety Report 12382935 (Version 2)
Quarter: 2016Q2

REPORT INFORMATION
  Report Type: Spontaneous
  Country: CN (occurrence: CN)
  Receive Date: 20160518
  Receipt Date: 20160524
  Transmission Date: 20160815
  Serious: No
  Sender: FDA-Public Use
  Company Number: CN-009507513-1507CHN007117

PATIENT
  Age: 69 Year
  Sex: Female
  Weight: 51 kg

DRUGS (24)
  1. CISPLATIN. [Concomitant]
     Active Substance: CISPLATIN
     Dosage: TREATMENT CYCLE: 1/UNK, TREATMENT REGIMEN: CISPLATIN (DDP PERITONEAL PERFUSION)
     Route: 041
     Dates: start: 20150604, end: 20150604
  2. ZHEN QI FU ZHENG [Concomitant]
     Indication: IMMUNOMODULATORY THERAPY
     Dosage: DAILY DOSE: 250 ML/CC, QD
     Route: 041
     Dates: start: 20150601, end: 20150608
  3. METOCLOPRAMIDE HYDROCHLORIDE. [Concomitant]
     Active Substance: METOCLOPRAMIDE HYDROCHLORIDE
     Indication: PROPHYLAXIS AGAINST GASTROINTESTINAL ULCER
     Dosage: DAILY DOSE: 10 MG, ONCE
     Route: 041
     Dates: start: 20150606, end: 20150606
  4. EPIRUBICIN HYDROCHLORIDE. [Concomitant]
     Active Substance: EPIRUBICIN HYDROCHLORIDE
     Dosage: DOSE/ SCHEDULE: 50 MG, D1-D2, TREATMENT CYCLE: 1/UNK, TREATMENT REGIMEN: FEC
     Route: 041
     Dates: start: 20150606, end: 20150607
  5. PALONOSETRON HYDROCHLORIDE. [Concomitant]
     Active Substance: PALONOSETRON HYDROCHLORIDE
     Dosage: DAILY DOSE: 0.25 MG, ONCE
     Route: 041
     Dates: start: 20150606, end: 20150606
  6. EMEND [Suspect]
     Active Substance: APREPITANT
     Indication: PROPHYLAXIS OF NAUSEA AND VOMITING
     Dosage: 125 MG, ONCE, DAY 1
     Route: 048
     Dates: start: 20150606, end: 20150606
  7. GLUTATHIONE [Concomitant]
     Active Substance: GLUTATHIONE
     Indication: ROUTINE HEALTH MAINTENANCE
     Dosage: DAILY DOSE: 1800 MG, QD
     Route: 041
     Dates: start: 20150601, end: 20150608
  8. HUAI ER KE LI [Concomitant]
     Indication: IMMUNOMODULATORY THERAPY
     Dosage: 20 G, TID
     Route: 048
     Dates: start: 20150608, end: 20150608
  9. QI JIAO SHENG BAI JIAO NANG [Concomitant]
     Indication: PROPHYLAXIS
     Dosage: DAILY DOSE: 6 G, TID
     Route: 048
     Dates: start: 20150608, end: 20150608
  10. THYMALFASIN [Concomitant]
     Active Substance: THYMALFASIN
     Indication: IMMUNOMODULATORY THERAPY
     Dosage: DAILY DOSE: 1.6 MG, TWICE PER WEEK
     Route: 058
     Dates: start: 20150608
  11. HYDROCHLOROTHIAZIDE. [Concomitant]
     Active Substance: HYDROCHLOROTHIAZIDE
     Indication: DIURETIC THERAPY
     Dosage: DAILY DOSE: 25 MG, QD
     Route: 048
     Dates: start: 20150530, end: 20150604
  12. DEXAMETHASONE SODIUM PHOSPHATE. [Concomitant]
     Active Substance: DEXAMETHASONE SODIUM PHOSPHATE
     Indication: PROPHYLAXIS OF NAUSEA AND VOMITING
     Dosage: DAILY DOSE: 5 MG, ONCE
     Route: 041
     Dates: start: 20150606, end: 20150606
  13. EMEND [Suspect]
     Active Substance: APREPITANT
     Dosage: 80 MG, ONCE, DAY 3
     Route: 048
     Dates: start: 20150608, end: 20150608
  14. PANTOPRAZOLE [Concomitant]
     Active Substance: PANTOPRAZOLE SODIUM
     Dosage: DAILY DOSE: 40 MG, QD
     Route: 041
     Dates: start: 20150606, end: 20150608
  15. LIDOCAINE HYDROCHLORIDE. [Concomitant]
     Active Substance: LIDOCAINE HYDROCHLORIDE
     Indication: BIOPSY
     Dosage: DAILY DOSE: 0.1 G, ONCE
     Route: 058
     Dates: start: 20150601, end: 20150601
  16. VALSARTAN. [Concomitant]
     Active Substance: VALSARTAN
     Indication: HYPERTENSION
     Dosage: 1 CAPSULE, QD
     Route: 048
     Dates: start: 2013
  17. CYCLOPHOSPHAMIDE. [Concomitant]
     Active Substance: CYCLOPHOSPHAMIDE
     Dosage: DOSE/ SCHEDULE: 0.65 G, D1, ONCE, TREATMENT CYCLE: 1/UNK, TREATMENT REGIMEN: FEC
     Route: 041
     Dates: start: 20150606, end: 20150606
  18. PHENOLPHTHALEIN [Concomitant]
     Active Substance: PHENOLPHTHALEIN
     Indication: PURGING
     Dosage: DAILY DOSE: 0.1 G, QN
     Route: 048
     Dates: start: 20150606, end: 20150608
  19. ONDANSETRON HYDROCHLORIDE. [Concomitant]
     Active Substance: ONDANSETRON HYDROCHLORIDE
     Indication: PROPHYLAXIS OF NAUSEA AND VOMITING
     Dosage: DAILY DOSE: 16 MG, BID
     Route: 048
     Dates: start: 20150608, end: 20150608
  20. SPIRONOLACTONE. [Concomitant]
     Active Substance: SPIRONOLACTONE
     Indication: DIURETIC THERAPY
     Dosage: DAILY DOSE: 20 MG, QD
     Route: 048
     Dates: start: 20150530, end: 20150604
  21. EMEND [Suspect]
     Active Substance: APREPITANT
     Dosage: 80 MG, ONCE, DAY 2
     Route: 048
     Dates: start: 20150607, end: 20150607
  22. PANTOPRAZOLE [Concomitant]
     Active Substance: PANTOPRAZOLE SODIUM
     Indication: PROPHYLAXIS AGAINST GASTROINTESTINAL ULCER
     Dosage: DAILY DOSE: 40 MG, ONCE
     Route: 041
     Dates: start: 20150604, end: 20150604
  23. PALONOSETRON HYDROCHLORIDE. [Concomitant]
     Active Substance: PALONOSETRON HYDROCHLORIDE
     Indication: PROPHYLAXIS OF NAUSEA AND VOMITING
     Dosage: DAILY DOSE: 0.25 MG, ONCE
     Route: 041
     Dates: start: 20150604, end: 20150604
  24. FLUOROURACIL. [Concomitant]
     Active Substance: FLUOROURACIL
     Dosage: DOSE/ SCHEDULE: 0.65 G, D1, ONCE, TREATMENT CYCLE: 1/UNK, TREATMENT REGIMEN: FEC
     Route: 041
     Dates: start: 20150606, end: 20150606

REACTIONS (2)
  - Aspartate aminotransferase increased [Recovering/Resolving]
  - Alanine aminotransferase increased [Recovering/Resolving]

NARRATIVE: CASE EVENT DATE: 20150608
